FAERS Safety Report 23826579 (Version 1)
Quarter: 2024Q2

REPORT INFORMATION
  Report Type: Spontaneous
  Country: IT (occurrence: IT)
  Receive Date: 20240507
  Receipt Date: 20240507
  Transmission Date: 20240716
  Serious: Yes (Other)
  Sender: FDA-Public Use
  Company Number: IT-ROCHE-3548065

PATIENT
  Age: 72 Year
  Sex: Female

DRUGS (9)
  1. OXALIPLATIN [Suspect]
     Active Substance: OXALIPLATIN
     Indication: Follicular lymphoma stage IV
     Dosage: THERAPY START DATE: NOV-2022?ROUTE OF ADMIN: UNKNOWN
  2. BENDAMUSTINE [Suspect]
     Active Substance: BENDAMUSTINE
     Indication: Follicular lymphoma stage IV
     Dosage: THERAPY START DATE: MAR-2017?ROUTE OF ADMIN: UNKNOWN
  3. GEMCITABINE [Suspect]
     Active Substance: GEMCITABINE
     Indication: Follicular lymphoma stage IV
     Dosage: -NOV-2022
  4. VINCRISTINE [Suspect]
     Active Substance: VINCRISTINE
     Indication: Follicular lymphoma stage IV
     Dosage: -JAN-2021
  5. RITUXIMAB [Suspect]
     Active Substance: RITUXIMAB
     Indication: Follicular lymphoma stage IV
     Dosage: EVERY 2 MONTHS FOR 2 YEARS?FOA: INTRAVENOUS INFUSION?-MAR-2017
  6. PREDNISONE [Suspect]
     Active Substance: PREDNISONE
     Indication: Follicular lymphoma stage IV
     Dosage: -JAN-2021
     Route: 065
  7. CYCLOPHOSPHAMIDE [Suspect]
     Active Substance: CYCLOPHOSPHAMIDE
     Indication: Follicular lymphoma stage IV
     Dosage: -JAN-2021
     Route: 065
  8. LENALIDOMIDE [Suspect]
     Active Substance: LENALIDOMIDE
     Indication: Follicular lymphoma stage IV
     Dosage: -MAY-2021
     Route: 065
  9. DOXORUBICIN [Suspect]
     Active Substance: DOXORUBICIN
     Indication: Follicular lymphoma stage IV
     Route: 065

REACTIONS (5)
  - Lymphatic duct injury [Unknown]
  - Follicular lymphoma [Unknown]
  - Chest pain [Unknown]
  - Off label use [Unknown]
  - Troponin T increased [Unknown]

NARRATIVE: CASE EVENT DATE: 20201001
